FAERS Safety Report 20858561 (Version 3)
Quarter: 2022Q3

REPORT INFORMATION
  Report Type: Report from Study
  Country: CO (occurrence: CO)
  Receive Date: 20220522
  Receipt Date: 20220802
  Transmission Date: 20221026
  Serious: Yes (Other)
  Sender: FDA-Public Use
  Company Number: CO-NOVARTISPH-NVSC2022CO116555

PATIENT
  Sex: Male

DRUGS (1)
  1. BROLUCIZUMAB [Suspect]
     Active Substance: BROLUCIZUMAB
     Indication: Macular degeneration
     Dosage: UNK UNK, QMO (3 INJECTIONS OF VSIQQ IN THE LEFT EYE)
     Route: 047
     Dates: start: 202111

REACTIONS (5)
  - Visual impairment [Unknown]
  - Macular oedema [Unknown]
  - Malaise [Not Recovered/Not Resolved]
  - Vision blurred [Recovering/Resolving]
  - Drug ineffective [Not Recovered/Not Resolved]
